FAERS Safety Report 6460147-5 (Version None)
Quarter: 2009Q4

REPORT INFORMATION
  Report Type: 
  Country: None (occurrence: None)
  Receive Date: 20091129
  Receipt Date: 20091123
  Transmission Date: 20100525
  Serious: Yes (Death, Hospitalization, Other)
  Sender: FDA-Public Use
  Company Number: FR-ELI_LILLY_AND_COMPANY-FR200911005754

PATIENT
  Sex: Female

DRUGS (2)
  1. GEMZAR [Suspect]
     Indication: BLADDER TRANSITIONAL CELL CARCINOMA
     Dosage: 1140 MG, UNKNOWN
     Route: 042
     Dates: start: 20090301, end: 20090717
  2. CARBOPLATIN [Concomitant]
     Indication: BLADDER TRANSITIONAL CELL CARCINOMA
     Dosage: 225 MG, UNKNOWN
     Route: 042
     Dates: start: 20090301, end: 20090717

REACTIONS (9)
  - ANAEMIA [None]
  - C-REACTIVE PROTEIN INCREASED [None]
  - DEATH [None]
  - DYSPNOEA EXERTIONAL [None]
  - HYPERTHERMIA [None]
  - INFECTION [None]
  - PURPURA [None]
  - RASH MACULAR [None]
  - THROMBOCYTOPENIA [None]
